FAERS Safety Report 7982842-9 (Version None)
Quarter: 2011Q4

REPORT INFORMATION
  Report Type: 
  Country: None (occurrence: None)
  Receive Date: 20111215
  Receipt Date: 20111206
  Transmission Date: 20120403
  Serious: Yes (Hospitalization)
  Sender: FDA-Public Use
  Company Number: US-BAYER-2011-093514

PATIENT
  Age: 47 Year
  Sex: Female
  Weight: 91 kg

DRUGS (12)
  1. SINGULAIR [Concomitant]
  2. BIAXIN XL [Concomitant]
  3. FENFLURAMINE W/PHENTERMINE [Concomitant]
     Dosage: UNK
     Dates: start: 20000101, end: 20090806
  4. CENTRUM [Concomitant]
     Indication: VITAMIN SUPPLEMENTATION
     Dosage: 1 A DAY
  5. CYCLOBENZAPRINE HCL [Concomitant]
     Dosage: 15 MG, QD
     Route: 048
     Dates: start: 20090824
  6. SYNTHROID [Concomitant]
     Indication: THYROID DISORDER
     Dosage: 175 MCG / 150 MCG DALILY
  7. ACIDOPHILUS [Concomitant]
     Indication: DYSPEPSIA
     Dosage: 1 A DAY
  8. PROAIR HFA [Concomitant]
     Dosage: 90 MCG, 2 PUFF(S), Q4-6H
     Route: 055
  9. YAZ [Suspect]
     Dosage: UNK
     Route: 048
     Dates: start: 20070901, end: 20090801
  10. ADVAIR DISKUS 100/50 [Concomitant]
     Dosage: 250MC - 50MCG
  11. LEVAQUIN [Concomitant]
  12. SYMBICORT [Concomitant]
     Dosage: 80 MCG - 4.5 MCG, 1 PUFF(S), BID
     Route: 055

REACTIONS (3)
  - PAIN [None]
  - PULMONARY EMBOLISM [None]
  - DEEP VEIN THROMBOSIS [None]
